FAERS Safety Report 15317919 (Version 1)
Quarter: 2018Q3

REPORT INFORMATION
  Report Type: Spontaneous
  Country: US (occurrence: US)
  Receive Date: 20180816
  Receipt Date: 20180816
  Transmission Date: 20181010
  Serious: Yes (Disabling, Other)
  Sender: FDA-Public Use
  Company Number: None

PATIENT
  Age: 23 Year
  Sex: Male
  Weight: 72 kg

DRUGS (1)
  1. LEVAQUIN [Suspect]
     Active Substance: LEVOFLOXACIN
     Indication: PNEUMONIA
     Dosage: ?          QUANTITY:1 TABLET(S);?
     Route: 048
     Dates: start: 20160211, end: 20160221

REACTIONS (7)
  - Weight bearing difficulty [None]
  - Pain in extremity [None]
  - Exostosis [None]
  - Bedridden [None]
  - Tendon pain [None]
  - Tendonitis [None]
  - Therapy non-responder [None]

NARRATIVE: CASE EVENT DATE: 20180801
